FAERS Safety Report 26048492 (Version 2)
Quarter: 2025Q4

REPORT INFORMATION
  Report Type: Spontaneous
  Country: US (occurrence: US)
  Receive Date: 20251114
  Receipt Date: 20251212
  Transmission Date: 20260117
  Serious: Yes (Other)
  Sender: NOVO NORDISK
  Company Number: US-NOVOPROD-1559759

PATIENT
  Age: 57 Year
  Sex: Female

DRUGS (37)
  1. WEGOVY [Suspect]
     Active Substance: SEMAGLUTIDE
     Indication: Weight control
     Dosage: 2.4 MG, QW
     Route: 058
     Dates: start: 20251022
  2. FLEXERIL [Concomitant]
     Active Substance: CYCLOBENZAPRINE HYDROCHLORIDE
     Indication: Product used for unknown indication
     Dosage: 1 TABLET, 3 TIMES DAILY
     Route: 048
     Dates: start: 20251010
  3. ATROVENT [Concomitant]
     Active Substance: IPRATROPIUM BROMIDE
     Indication: Product used for unknown indication
     Dosage: FOR 5 DAYS, 3 TIMES EACH NOSTRIL
     Dates: start: 20250207
  4. LINZESS [Concomitant]
     Active Substance: LINACLOTIDE
     Indication: Product used for unknown indication
     Dosage: 145 MCG BEFORE BREAKFAST
     Route: 048
     Dates: start: 20250708
  5. ROBAXIN [Concomitant]
     Active Substance: METHOCARBAMOL
     Indication: Muscle spasms
     Dosage: 750 MG 4 TIMES A DAY
     Route: 048
     Dates: start: 2025
  6. PROVENTIL [Concomitant]
     Active Substance: ALBUTEROL
     Indication: Wheezing
     Dosage: 1 VIAL FOR NEBULIZATION, EVERY 6 H AS NEEDED
     Dates: start: 20250220
  7. PROVENTIL [Concomitant]
     Active Substance: ALBUTEROL
     Indication: Dyspnoea
  8. VENTOLIN HFA [Concomitant]
     Active Substance: ALBUTEROL SULFATE
     Indication: Wheezing
     Dosage: 2 PUFFS, EVERY 6 H AS NEEDED, STOP DATE PLANNED 09-JAN-2026
     Route: 055
     Dates: start: 20250109
  9. ANTACID PLUS ANTI-GAS [Concomitant]
     Indication: Product used for unknown indication
     Dosage: 200-200-20 MG/5 ML
     Route: 048
     Dates: start: 20241212
  10. VITAMIN B COMPLEX [Concomitant]
     Active Substance: CYANOCOBALAMIN\DEXPANTHENOL\NIACINAMIDE\PYRIDOXINE HYDROCHLORIDE\RIBOFLAVIN 5^-PHOSPHATE SODIUM\THIA
     Indication: Product used for unknown indication
     Dosage: UNK
     Route: 048
  11. TESSALON [Concomitant]
     Active Substance: BENZONATATE
     Indication: Product used for unknown indication
     Dosage: 200 MG, QD
     Route: 048
     Dates: start: 20250807
  12. FIORICET [Concomitant]
     Active Substance: ACETAMINOPHEN\BUTALBITAL\CAFFEINE
     Indication: Product used for unknown indication
     Dosage: 50-325-40 MG
     Route: 048
     Dates: start: 20251102
  13. ESGIC [Concomitant]
     Active Substance: ACETAMINOPHEN\BUTALBITAL\CAFFEINE
     Indication: Product used for unknown indication
     Dosage: 40 MG, 1 TABLET, EVERY 6 H
     Route: 048
     Dates: start: 20251102
  14. CALCIUM\VITAMIN D [Concomitant]
     Active Substance: CALCIUM\VITAMIN D
     Indication: Product used for unknown indication
     Dosage: 2 TABLETS, 250-100 MG, HOLD 7 DAYS PRIOR TO SURGERY
     Route: 048
  15. ZYRTEC [Concomitant]
     Active Substance: CETIRIZINE HYDROCHLORIDE
     Indication: Product used for unknown indication
     Dosage: 10 MG, QD, 2 TABLETS (10 MG TOTAL), EVERY EVENING, PM BEFORE SURGERY
     Route: 048
     Dates: start: 20230103, end: 20250422
  16. KLONOPIN [Concomitant]
     Active Substance: CLONAZEPAM
     Indication: Product used for unknown indication
     Dosage: 14 MG, QD, 2 TABLETS (14 MG TOTAL), NIGHTLY
     Route: 048
     Dates: start: 20241218
  17. CYANOCOBALAMIN [Concomitant]
     Active Substance: CYANOCOBALAMIN
     Indication: Product used for unknown indication
     Dosage: 500 MCG, HOLD 7 DAYS PRIOR TO SURGERY
     Route: 048
  18. XYZAL [Concomitant]
     Active Substance: LEVOCETIRIZINE DIHYDROCHLORIDE
     Indication: Product used for unknown indication
     Dosage: 5 MG, QD, 1 TABLET EVERY EVENING
     Route: 048
     Dates: start: 20250407
  19. VALTOCO [Concomitant]
     Active Substance: DIAZEPAM
     Indication: Product used for unknown indication
     Dosage: 1 TABLET, 3 TIMES DAILY
     Route: 048
     Dates: start: 20230512
  20. VITAMIN D2 [Concomitant]
     Active Substance: ERGOCALCIFEROL
     Indication: Product used for unknown indication
     Dosage: ONE CAPSULE, 50 000 IU
     Route: 048
  21. FLONASE [Concomitant]
     Active Substance: FLUTICASONE PROPIONATE
     Indication: Product used for unknown indication
     Dosage: UNK
  22. NEURONTIN [Concomitant]
     Active Substance: GABAPENTIN
     Indication: Product used for unknown indication
     Dosage: 4 TABLETS NIGHTLY
     Route: 048
     Dates: start: 20241203
  23. GALCANEZUMAB-GNLM [Concomitant]
     Active Substance: GALCANEZUMAB-GNLM
     Indication: Product used for unknown indication
     Dosage: UNK, QD, 1 ML (120 MG) EVERY 28 DAYS
     Route: 058
  24. LATUDA [Concomitant]
     Active Substance: LURASIDONE HYDROCHLORIDE
     Indication: Product used for unknown indication
     Dosage: 1 TABLET
     Route: 048
     Dates: start: 20250803, end: 20251003
  25. TOPROL XL [Concomitant]
     Active Substance: METOPROLOL SUCCINATE
     Indication: Muscle spasms
     Dosage: 50 MG, QD, 1 TABLET, FOR 90 DAYS
     Route: 048
     Dates: start: 20250317
  26. THERAGRAN [ASCORBIC ACID;CALCIUM PANTOTHENATE;CYANOCOBALAMIN;ERGOCALCI [Concomitant]
     Indication: Product used for unknown indication
     Dosage: UNK, QD, 1 TABLET
     Route: 048
  27. NARCAN [Concomitant]
     Active Substance: NALOXONE HYDROCHLORIDE
     Indication: Overdose
     Dosage: 4 MG, QD
     Route: 045
     Dates: start: 20250408
  28. PAMELOR [Concomitant]
     Active Substance: NORTRIPTYLINE HYDROCHLORIDE
     Indication: Product used for unknown indication
     Dosage: 20 MG, 2 CAPSULES, EVERY EVENING
     Route: 048
     Dates: start: 20250522, end: 20250621
  29. PRILOSEC [Concomitant]
     Active Substance: OMEPRAZOLE MAGNESIUM
     Indication: Product used for unknown indication
     Dosage: 40 MG, BID, BEFORE MEALS
     Route: 048
     Dates: start: 20250422
  30. GLYCOLAX [Concomitant]
     Active Substance: POLYETHYLENE GLYCOL 3350
     Indication: Product used for unknown indication
     Dosage: 17 G, MIX AND DISSOLVE INTO A BEVERAGE AND DRINK BY MOUTH
     Route: 048
     Dates: start: 20241212
  31. PHENERGAN [Concomitant]
     Active Substance: PROMETHAZINE HYDROCHLORIDE
     Indication: Product used for unknown indication
     Dosage: 25 MG, BID
     Route: 048
     Dates: start: 20250803
  32. PHENERGAN [Concomitant]
     Active Substance: PROMETHAZINE HYDROCHLORIDE
     Dosage: 25 MG, BID
     Route: 048
     Dates: start: 20250804
  33. SENNA S [Concomitant]
     Active Substance: DOCUSATE SODIUM\SENNOSIDES
     Indication: Product used for unknown indication
     Dosage: UNK, BID, 8.6-50 MG, 1 TABLET
     Route: 048
     Dates: start: 20250524
  34. SUPREP BOWEL PREP [Concomitant]
     Active Substance: MAGNESIUM SULFATE\POTASSIUM SULFATE\SODIUM SULFATE
     Indication: Product used for unknown indication
     Dosage: UNK, BID
     Route: 048
     Dates: start: 20250413
  35. IMITREX [Concomitant]
     Active Substance: SUMATRIPTAN SUCCINATE
     Indication: Headache
     Dosage: 100 MG, 1 TABLET, NO MORA THAT 2 TABLETS PER 24H
     Route: 048
     Dates: start: 20250423
  36. VENLAFAXINE HYDROCHLORIDE [Concomitant]
     Active Substance: VENLAFAXINE HYDROCHLORIDE
     Indication: Product used for unknown indication
     Dosage: 150 MG, QD
     Route: 048
     Dates: start: 20250718
  37. ONABOTULINUMTOXINA [Concomitant]
     Active Substance: ONABOTULINUMTOXINA
     Indication: Product used for unknown indication
     Dosage: EVERY 12 WEEKS, 200 U
     Route: 030
     Dates: start: 20250827

REACTIONS (7)
  - Knee operation [Unknown]
  - Bipolar disorder [Unknown]
  - Schizophrenia [Unknown]
  - Dysphagia [Not Recovered/Not Resolved]
  - Vomiting [Not Recovered/Not Resolved]
  - Weight increased [Unknown]
  - Product dispensing error [Unknown]

NARRATIVE: CASE EVENT DATE: 20250101
